FAERS Safety Report 11401059 (Version 2)
Quarter: 2015Q4

REPORT INFORMATION
  Report Type: Other
  Country: US (occurrence: US)
  Receive Date: 20150820
  Receipt Date: 20151006
  Transmission Date: 20160304
  Serious: Yes (Death, Hospitalization)
  Sender: FDA-Public Use
  Company Number: US-UNITED THERAPEUTICS-UNT-2015-009417

PATIENT
  Age: 64 Year
  Sex: Female
  Weight: 100.36 kg

DRUGS (3)
  1. SILDENAFIL                         /01367502/ [Concomitant]
     Active Substance: SILDENAFIL
     Indication: PRODUCT USED FOR UNKNOWN INDICATION
  2. REMODULIN [Suspect]
     Active Substance: TREPROSTINIL
     Indication: PULMONARY HYPERTENSION
     Dosage: 0.019 ?G/KG, CONTINUING
     Route: 041
     Dates: start: 20150603, end: 20150811
  3. WARFARIN                           /00014802/ [Concomitant]
     Active Substance: WARFARIN
     Indication: PRODUCT USED FOR UNKNOWN INDICATION

REACTIONS (2)
  - Large intestine polyp [Unknown]
  - Postoperative respiratory failure [Fatal]

NARRATIVE: CASE EVENT DATE: 20150805
